FAERS Safety Report 17631324 (Version 1)
Quarter: 2020Q2

REPORT INFORMATION
  Report Type: Spontaneous
  Country: US (occurrence: US)
  Receive Date: 20200406
  Receipt Date: 20200406
  Transmission Date: 20200713
  Serious: Yes (Other)
  Sender: FDA-Public Use
  Company Number: US-AMERICAN REGENT INC-2020000795

PATIENT
  Age: 75 Year
  Sex: Male

DRUGS (1)
  1. LEVETIRACETAM INJECTION (0517-3605-01) [Suspect]
     Active Substance: LEVETIRACETAM
     Indication: SEIZURE PROPHYLAXIS
     Dosage: 1000 MILLIGRAM (SIX DOSES)

REACTIONS (5)
  - Intentional product use issue [Unknown]
  - Product use in unapproved indication [Unknown]
  - Delirium [Recovered/Resolved]
  - Product preparation issue [Unknown]
  - Agitation [Unknown]
